FAERS Safety Report 15694125 (Version 1)
Quarter: 2018Q4

REPORT INFORMATION
  Report Type: Spontaneous
  Country: US (occurrence: US)
  Receive Date: 20181126
  Receipt Date: 20181126
  Transmission Date: 20190205
  Serious: No
  Sender: FDA-Public Use
  Company Number: None

PATIENT
  Age: 32 Year
  Sex: Male

DRUGS (1)
  1. QUETIAPINE. [Suspect]
     Active Substance: QUETIAPINE
     Indication: DEPRESSION
     Route: 048
     Dates: start: 20180809, end: 20180809

REACTIONS (3)
  - Suicide attempt [None]
  - Hyperhidrosis [None]
  - Intentional overdose [None]

NARRATIVE: CASE EVENT DATE: 20180809
